FAERS Safety Report 7302549-0 (Version None)
Quarter: 2011Q1

REPORT INFORMATION
  Report Type: 
  Country: None (occurrence: None)
  Receive Date: 20110218
  Receipt Date: 20110215
  Transmission Date: 20110831
  Serious: No
  Sender: FDA-Public Use
  Company Number: US-PFIZER INC-2010113617

PATIENT
  Sex: Male
  Weight: 86.168 kg

DRUGS (12)
  1. CO-Q-10 [Concomitant]
     Dosage: 100 MG, DAILY
  2. LYRICA [Suspect]
     Indication: CONVULSION
     Dosage: 75 MG, 2X/DAY
     Route: 048
     Dates: start: 20100824
  3. CALCIUM [Concomitant]
     Dosage: 600 MG, 2X/DAY
  4. LOVASTATIN [Concomitant]
     Indication: BLOOD CHOLESTEROL INCREASED
     Dosage: 20 MG, DAILY
  5. CENTRUM [Concomitant]
     Dosage: 2 DF, 1X/DAY
  6. TRAZODONE [Concomitant]
     Indication: DEPRESSION
     Dosage: 50 MG, DAILY
  7. LISINOPRIL [Concomitant]
     Indication: HYPERTENSION
     Dosage: 10 MG, DAILY
  8. LOVAZA [Concomitant]
     Indication: AFFECTIVE DISORDER
     Dosage: 3 DF, 1X/DAY
  9. METFORMIN [Concomitant]
     Indication: DIABETES MELLITUS
     Dosage: 500 MG, DAILY
  10. NEXIUM [Concomitant]
     Indication: DYSPEPSIA
     Dosage: 40 MG, ALTERNATE DAY
  11. LYRICA [Suspect]
     Dosage: 75 MG, 3X/DAY
     Route: 048
     Dates: start: 20100801
  12. ACETYLSALICYLIC ACID [Concomitant]
     Dosage: 325 MG, ALTERNATE DAY

REACTIONS (2)
  - PAIN IN EXTREMITY [None]
  - MYALGIA [None]
